FAERS Safety Report 8624301-6 (Version None)
Quarter: 2012Q3

REPORT INFORMATION
  Report Type: 
  Country: None (occurrence: None)
  Receive Date: 20120827
  Receipt Date: 20120816
  Transmission Date: 20120928
  Serious: Yes (Other)
  Sender: FDA-Public Use
  Company Number: CN-ASTRAZENECA-2012SE61102

PATIENT
  Sex: Male
  Weight: 55.8 kg

DRUGS (1)
  1. CRESTOR [Suspect]
     Indication: HYPERLIPASAEMIA
     Route: 048
     Dates: start: 20110514, end: 20110614

REACTIONS (2)
  - HEPATIC FUNCTION ABNORMAL [None]
  - HEPATIC PAIN [None]
